FAERS Safety Report 4682231-9 (Version None)
Quarter: 2005Q2

REPORT INFORMATION
  Report Type: 
  Country: None (occurrence: None)
  Receive Date: 20050603
  Receipt Date: 20050603
  Transmission Date: 20051028
  Serious: Yes (Other)
  Sender: FDA-Public Use
  Company Number: None

PATIENT
  Age: 75 Year
  Sex: Male
  Weight: 67.1324 kg

DRUGS (1)
  1. OXALIPLATIN  100MG  SANOFI [Suspect]
     Indication: PROSTATE CANCER
     Dosage: 100MG   Q3 WEEKS     INTRACAVER
     Route: 017
     Dates: start: 20050113, end: 20050428

REACTIONS (5)
  - CHEST PAIN [None]
  - DYSPHAGIA [None]
  - DYSPNOEA [None]
  - NAUSEA [None]
  - RASH [None]
